FAERS Safety Report 12095625 (Version 1)
Quarter: 2016Q1

REPORT INFORMATION
  Report Type: Spontaneous
  Country: US (occurrence: US)
  Receive Date: 20160219
  Receipt Date: 20160219
  Transmission Date: 20160526
  Serious: Yes (Death, Hospitalization, Other)
  Sender: FDA-Public Use
  Company Number: PHBS1999US10921

PATIENT
  Sex: Male
  Weight: 1.95 kg

DRUGS (1)
  1. CARBAMAZEPINE. [Suspect]
     Active Substance: CARBAMAZEPINE
     Indication: FOETAL EXPOSURE DURING PREGNANCY
     Dosage: MATERNAL DOSE: 600MG/DAY
     Route: 064

REACTIONS (17)
  - Hypertelorism of orbit [Fatal]
  - Foetal heart rate deceleration abnormality [Unknown]
  - Dysmorphism [Unknown]
  - Hypotension [Unknown]
  - Clonus [Unknown]
  - Hypertonia [Unknown]
  - Generalised tonic-clonic seizure [Unknown]
  - Foetal exposure during pregnancy [Unknown]
  - Low birth weight baby [Unknown]
  - Premature baby [Unknown]
  - Joint range of motion decreased [Fatal]
  - Acidosis [Unknown]
  - Microcephaly [Fatal]
  - Eye disorder [Fatal]
  - Unresponsive to stimuli [Unknown]
  - Pupillary reflex impaired [Fatal]
  - Hyperreflexia [Fatal]
